FAERS Safety Report 4408181-0 (Version None)
Quarter: 2004Q3

REPORT INFORMATION
  Report Type: 
  Country: None (occurrence: None)
  Receive Date: 20040722
  Receipt Date: 20040712
  Transmission Date: 20050211
  Serious: No
  Sender: FDA-Public Use
  Company Number: 04H-028-0266919-00

PATIENT
  Age: 49 Year
  Sex: Female

DRUGS (1)
  1. HEPARIN SODIUM [Suspect]
     Dosage: 10000 UNIT, PER DAY

REACTIONS (8)
  - CHEST DISCOMFORT [None]
  - DEEP VEIN THROMBOSIS [None]
  - DISEASE RECURRENCE [None]
  - HEPARIN-INDUCED THROMBOCYTOPENIA [None]
  - HYPERTENSION [None]
  - POST PROCEDURAL COMPLICATION [None]
  - RESTLESSNESS [None]
  - TACHYPNOEA [None]
